FAERS Safety Report 11076063 (Version 2)
Quarter: 2017Q3

REPORT INFORMATION
  Report Type: Spontaneous
  Country: DE (occurrence: DE)
  Receive Date: 20150429
  Receipt Date: 20170711
  Transmission Date: 20171127
  Serious: Yes (Other)
  Sender: FDA-Public Use
  Company Number: DE-TEVA-558839GER

PATIENT
  Age: 21 Year
  Sex: Male

DRUGS (3)
  1. ITRACONAZOLE. [Interacting]
     Active Substance: ITRACONAZOLE
     Indication: ANTIFUNGAL PROPHYLAXIS
     Dosage: INCREASED AT 19YRS FOLLOWING UNTRACEABLE LEVELS
     Route: 065
  2. COTRIMOXAZOLE [Suspect]
     Active Substance: SULFAMETHOXAZOLE\TRIMETHOPRIM
     Indication: PROPHYLAXIS
     Route: 065
  3. ISOTRETINOIN [Suspect]
     Active Substance: ISOTRETINOIN
     Indication: ACNE
     Dosage: SYSTEMIC
     Route: 065

REACTIONS (8)
  - Lymphadenitis [Unknown]
  - Anal abscess [Unknown]
  - Cough [Unknown]
  - Treatment failure [Unknown]
  - Colitis [Unknown]
  - Bronchopulmonary aspergillosis [Recovering/Resolving]
  - Pneumonia [Unknown]
  - Drug interaction [Unknown]

NARRATIVE: CASE EVENT DATE: 2011
